FAERS Safety Report 14309569 (Version 1)
Quarter: 2017Q4

REPORT INFORMATION
  Report Type: Other
  Country: US (occurrence: US)
  Receive Date: 20171220
  Receipt Date: 20171220
  Transmission Date: 20180321
  Serious: Yes (Death)
  Sender: FDA-Public Use
  Company Number: US-LEADIANT BIOSCIENCES INC-2017STPI000898

PATIENT
  Age: 73 Year
  Sex: Male

DRUGS (11)
  1. SYNTHROID [Concomitant]
     Active Substance: LEVOTHYROXINE SODIUM
     Dosage: 50 MCG
     Dates: start: 20171106
  2. TORSEMIDE. [Concomitant]
     Active Substance: TORSEMIDE
  3. VITAMIN D3 [Concomitant]
     Active Substance: CHOLECALCIFEROL
     Dosage: 400 UNITS
     Dates: start: 20171106
  4. MATULANE [Suspect]
     Active Substance: PROCARBAZINE HYDROCHLORIDE
     Indication: LYMPHOMA
     Dosage: 50 MG, 2 CAPSULES QD ON DAYS 1 TO 10 DURING CYCLE
     Route: 048
     Dates: start: 20171108, end: 20171124
  5. LOSARTAN POTASSIUM. [Concomitant]
     Active Substance: LOSARTAN POTASSIUM
     Dosage: 25 MG, UNK
     Dates: start: 20171106
  6. IRON [Concomitant]
     Active Substance: IRON
     Dosage: UNK
     Dates: start: 20171106
  7. METOPROLOL TARTRATE. [Concomitant]
     Active Substance: METOPROLOL TARTRATE
     Dosage: UNK
     Dates: start: 20171106
  8. ASPIRIN                            /00002701/ [Concomitant]
     Active Substance: ASPIRIN
  9. ATORVASTATIN [Concomitant]
     Active Substance: ATORVASTATIN
     Dosage: 100 MG, UNK
     Route: 048
     Dates: start: 20171106
  10. FUROSEMIDE. [Concomitant]
     Active Substance: FUROSEMIDE
     Dosage: 10 G/ML, UNK
     Dates: start: 20171106
  11. OMEPRAZOLE. [Concomitant]
     Active Substance: OMEPRAZOLE
     Dosage: 10 MG, UNK
     Dates: start: 20171106

REACTIONS (1)
  - Death [Fatal]

NARRATIVE: CASE EVENT DATE: 20171108
